FAERS Safety Report 17941038 (Version 1)
Quarter: 2020Q2

REPORT INFORMATION
  Report Type: Spontaneous
  Country: US (occurrence: US)
  Receive Date: 20200624
  Receipt Date: 20200624
  Transmission Date: 20200714
  Serious: No
  Sender: FDA-Public Use
  Company Number: None

PATIENT
  Age: 66 Year
  Sex: Female
  Weight: 69.3 kg

DRUGS (18)
  1. DARZALEZ [Concomitant]
  2. ONDANSETRON [Concomitant]
     Active Substance: ONDANSETRON
  3. XPOVIO [Suspect]
     Active Substance: SELINEXOR
     Indication: PLASMA CELL MYELOMA
     Dosage: ?          OTHER FREQUENCY:WEEKLY X3, 1WK OFF;?
     Route: 048
     Dates: start: 20200501
  4. AMITRIPTYLINE [Concomitant]
     Active Substance: AMITRIPTYLINE
  5. LEVETIRACETAM. [Concomitant]
     Active Substance: LEVETIRACETAM
  6. NEXIUM [Concomitant]
     Active Substance: ESOMEPRAZOLE MAGNESIUM
  7. OLANZAPINE. [Concomitant]
     Active Substance: OLANZAPINE
  8. SERTRALINE [Concomitant]
     Active Substance: SERTRALINE HYDROCHLORIDE
  9. XARELTO [Concomitant]
     Active Substance: RIVAROXABAN
  10. AMLODIPINE BESYLATE. [Concomitant]
     Active Substance: AMLODIPINE BESYLATE
  11. COQ10 [Concomitant]
     Active Substance: UBIDECARENONE
  12. SUPER B COMPLEX [Concomitant]
     Active Substance: CYANOCOBALAMIN\DEXPANTHENOL\NIACINAMIDE\PYRIDOXINE HYDROCHLORIDE\RIBOFLAVIN 5^-PHOSPHATE SODIUM\THIAMINE HYDROCHLORIDE\VITAMIN B COMPLEX
  13. ACYCLOVIR. [Concomitant]
     Active Substance: ACYCLOVIR
  14. MULTIVITAMIN [Concomitant]
     Active Substance: VITAMINS
  15. ATORVASTATIN [Concomitant]
     Active Substance: ATORVASTATIN
  16. METOPROLOL. [Concomitant]
     Active Substance: METOPROLOL
  17. VARUBI [Concomitant]
     Active Substance: ROLAPITANT
  18. VELCADE [Concomitant]
     Active Substance: BORTEZOMIB

REACTIONS (1)
  - Disease progression [None]

NARRATIVE: CASE EVENT DATE: 20200624
